FAERS Safety Report 8574467-1 (Version None)
Quarter: 2012Q3

REPORT INFORMATION
  Report Type: 
  Country: None (occurrence: None)
  Receive Date: 20120806
  Receipt Date: 20110816
  Transmission Date: 20120928
  Serious: No
  Sender: FDA-Public Use
  Company Number: US-ABBOTT-11P-163-0847795-00

PATIENT
  Sex: Male

DRUGS (1)
  1. DEPAKOTE ER [Suspect]
     Indication: PRODUCT USED FOR UNKNOWN INDICATION
     Dosage: 2 IN 1 DAY AT BEDTIME
     Dates: end: 20110501

REACTIONS (1)
  - ALOPECIA [None]
